FAERS Safety Report 12015896 (Version 5)
Quarter: 2016Q2

REPORT INFORMATION
  Report Type: Spontaneous
  Country: US (occurrence: US)
  Receive Date: 20160205
  Receipt Date: 20160624
  Transmission Date: 20160815
  Serious: No
  Sender: FDA-Public Use
  Company Number: US-ASTRAZENECA-2016SE00706

PATIENT
  Age: 69 Year
  Sex: Male
  Weight: 88.5 kg

DRUGS (1)
  1. SYMBICORT [Suspect]
     Active Substance: BUDESONIDE\FORMOTEROL FUMARATE DIHYDRATE
     Indication: CHRONIC OBSTRUCTIVE PULMONARY DISEASE
     Dosage: 160-4.5 MCG ,TWO TIMES A DAY
     Route: 055
     Dates: start: 2014

REACTIONS (8)
  - Chronic obstructive pulmonary disease [Unknown]
  - Drug ineffective [Unknown]
  - Drug effect delayed [Unknown]
  - Back disorder [Unknown]
  - Device malfunction [Unknown]
  - Dyspnoea [Unknown]
  - Condition aggravated [Unknown]
  - Drug dose omission [Unknown]

NARRATIVE: CASE EVENT DATE: 2015
